FAERS Safety Report 11513311 (Version 1)
Quarter: 2015Q3

REPORT INFORMATION
  Report Type: Report from Study
  Country: US (occurrence: US)
  Receive Date: 20150916
  Receipt Date: 20150916
  Transmission Date: 20151125
  Serious: Yes (Other)
  Sender: FDA-Public Use
  Company Number: US-AMGEN-USASL2015094272

PATIENT
  Age: 63 Year
  Sex: Male

DRUGS (1)
  1. ENBREL [Suspect]
     Active Substance: ETANERCEPT
     Indication: PRODUCT USED FOR UNKNOWN INDICATION
     Dosage: UNK
     Route: 065
     Dates: start: 201310, end: 20150901

REACTIONS (3)
  - Diabetes mellitus [Unknown]
  - Hypersensitivity [Unknown]
  - Endoscopy upper gastrointestinal tract [Unknown]

NARRATIVE: CASE EVENT DATE: 20150908
